FAERS Safety Report 17316716 (Version 3)
Quarter: 2020Q2

REPORT INFORMATION
  Report Type: Report from Study
  Country: US (occurrence: US)
  Receive Date: 20200124
  Receipt Date: 20200511
  Transmission Date: 20200713
  Serious: Yes (Life-Threatening, Hospitalization, Other)
  Sender: FDA-Public Use
  Company Number: PHHY2019US003921

PATIENT
  Age: 2 Year
  Sex: Male
  Weight: 16.9 kg

DRUGS (3)
  1. KYMRIAH [Suspect]
     Active Substance: TISAGENLECLEUCEL
     Indication: ACUTE LYMPHOCYTIC LEUKAEMIA
     Dosage: 1.3 X 10^6 POSITIVE VIABLE T CELLS/KG BODY WEIGHT
     Route: 042
     Dates: start: 20181226, end: 20181226
  2. FLUDARABINE [Concomitant]
     Active Substance: FLUDARABINE PHOSPHATE
     Indication: PRODUCT USED FOR UNKNOWN INDICATION
     Dosage: 30 MG/M2, X 4 DAYS
     Route: 065
     Dates: start: 20181217, end: 20181220
  3. CYTOXAN [Concomitant]
     Active Substance: CYCLOPHOSPHAMIDE
     Indication: PRODUCT USED FOR UNKNOWN INDICATION
     Dosage: 500 MG/M2, X 2 DAYS
     Route: 065
     Dates: start: 20181217, end: 20181218

REACTIONS (10)
  - Pyrexia [Recovered/Resolved]
  - Clostridium difficile colitis [Not Recovered/Not Resolved]
  - Cytokine release syndrome [Recovered/Resolved]
  - Vomiting [Unknown]
  - Encephalopathy [Recovered/Resolved]
  - Sinus tachycardia [Not Recovered/Not Resolved]
  - Diarrhoea [Unknown]
  - Hypotension [Unknown]
  - Hypotension [Recovered/Resolved]
  - Disseminated intravascular coagulation [Recovered/Resolved]

NARRATIVE: CASE EVENT DATE: 20190104
